FAERS Safety Report 4945562-0 (Version None)
Quarter: 2006Q1

REPORT INFORMATION
  Report Type: 
  Country: None (occurrence: None)
  Receive Date: 20060117
  Receipt Date: 20051007
  Transmission Date: 20060701
  Serious: Yes (Hospitalization)
  Sender: FDA-Public Use
  Company Number: A03200503195

PATIENT
  Age: 71 Year
  Sex: Female

DRUGS (2)
  1. PLAVIX [Suspect]
     Indication: MYOCARDIAL INFARCTION
     Dosage: 75 MG QD ORAL
     Route: 048
     Dates: start: 20050502, end: 20050518
  2. TROMBYL - ACETYLSALICYLIC ACID - TABLET - 75 MG [Suspect]
     Indication: MYOCARDIAL INFARCTION
     Dosage: 75 MG QD ORAL
     Route: 048
     Dates: start: 20050502, end: 20050518

REACTIONS (3)
  - CEREBRAL HAEMORRHAGE [None]
  - CONFUSIONAL STATE [None]
  - VISUAL ACUITY REDUCED [None]
